FAERS Safety Report 22141875 (Version 2)
Quarter: 2023Q1

REPORT INFORMATION
  Report Type: Spontaneous
  Country: US (occurrence: US)
  Receive Date: 20230327
  Receipt Date: 20230330
  Transmission Date: 20230418
  Serious: Yes (Other)
  Sender: FDA-Public Use
  Company Number: US-SANOFI-01545759

PATIENT
  Age: 37 Year
  Sex: Female

DRUGS (1)
  1. DUPIXENT [Suspect]
     Active Substance: DUPILUMAB
     Indication: Erythrodermic atopic dermatitis
     Dosage: 300 MG, QOW

REACTIONS (2)
  - Corneal neovascularisation [Unknown]
  - Product use in unapproved indication [Unknown]
